FAERS Safety Report 25424227 (Version 1)
Quarter: 2025Q2

REPORT INFORMATION
  Report Type: Spontaneous
  Country: IT (occurrence: IT)
  Receive Date: 20250611
  Receipt Date: 20250611
  Transmission Date: 20250717
  Serious: Yes (Other)
  Sender: MYLAN
  Company Number: IT-AUROBINDO-AUR-APL-2025-020899

PATIENT
  Age: 13 Year
  Sex: Male

DRUGS (2)
  1. FINGOLIMOD [Suspect]
     Active Substance: FINGOLIMOD
     Indication: Multiple sclerosis
     Dosage: 0.5 MILLIGRAM, QD (DAILY)
  2. Immunoglobulin [Concomitant]
     Indication: Multiple sclerosis

REACTIONS (1)
  - Peripheral nerve lesion [Unknown]
